FAERS Safety Report 19448938 (Version 2)
Quarter: 2021Q4

REPORT INFORMATION
  Report Type: Spontaneous
  Country: US (occurrence: US)
  Receive Date: 20210622
  Receipt Date: 20211004
  Transmission Date: 20220304
  Serious: Yes (Hospitalization)
  Sender: FDA-Public Use
  Company Number: US-JNJFOC-20210626229

PATIENT
  Age: 41 Year
  Sex: Female

DRUGS (1)
  1. TREMFYA [Suspect]
     Active Substance: GUSELKUMAB
     Indication: Psoriasis
     Route: 065
     Dates: start: 20210501

REACTIONS (5)
  - Swelling [Unknown]
  - Chills [Unknown]
  - Nausea [Unknown]
  - Cough [Unknown]
  - Psoriasis [Unknown]

NARRATIVE: CASE EVENT DATE: 20210501
